FAERS Safety Report 5209837-2 (Version None)
Quarter: 2006Q4

REPORT INFORMATION
  Report Type: 
  Country: None (occurrence: None)
  Receive Date: 20061130
  Receipt Date: 20060213
  Transmission Date: 20070319
  Serious: Yes (Hospitalization)
  Sender: FDA-Public Use
  Company Number: 2005158453

PATIENT
  Age: 39 Year
  Sex: Male
  Weight: 113.3993 kg

DRUGS (1)
  1. ZYVOX [Suspect]
     Indication: STAPHYLOCOCCAL INFECTION
     Dosage: 1200 MG (600 MG, 2 IN 1 D); ORAL
     Route: 048
     Dates: start: 20051010, end: 20051001

REACTIONS (1)
  - DRUG INEFFECTIVE [None]
